FAERS Safety Report 4926027-9 (Version None)
Quarter: 2006Q1

REPORT INFORMATION
  Report Type: 
  Country: None (occurrence: None)
  Receive Date: 20060228
  Receipt Date: 20050728
  Transmission Date: 20060701
  Serious: No
  Sender: FDA-Public Use
  Company Number: US-GLAXOSMITHKLINE-A0568137A

PATIENT
  Age: 36 Year
  Sex: Female

DRUGS (4)
  1. LAMICTAL [Suspect]
     Indication: BIPOLAR DISORDER
     Dosage: 50MG PER DAY
     Route: 048
     Dates: end: 20050721
  2. SEROQUEL [Concomitant]
     Dosage: 800MG PER DAY
     Dates: start: 20030930
  3. NEURONTIN [Concomitant]
     Dosage: 5400MG PER DAY
     Dates: start: 20020904
  4. WELLBUTRIN XL [Concomitant]
     Dosage: 300MG PER DAY
     Route: 048
     Dates: start: 20050203

REACTIONS (2)
  - PAIN [None]
  - SKIN LESION [None]
